FAERS Safety Report 6043466-6 (Version None)
Quarter: 2009Q1

REPORT INFORMATION
  Report Type: 
  Country: None (occurrence: None)
  Receive Date: 20090120
  Receipt Date: 20090109
  Transmission Date: 20090719
  Serious: Yes (Hospitalization)
  Sender: FDA-Public Use
  Company Number: US-JNJFOC-20081100816

PATIENT
  Sex: Male
  Weight: 120.2 kg

DRUGS (2)
  1. REMICADE [Suspect]
     Dosage: 2 INFUSIONS
     Route: 042
  2. REMICADE [Suspect]
     Indication: RHEUMATOID ARTHRITIS
     Route: 042

REACTIONS (4)
  - ADVERSE DRUG REACTION [None]
  - DEMYELINATING POLYNEUROPATHY [None]
  - DYSPNOEA [None]
  - MUSCULAR WEAKNESS [None]
